FAERS Safety Report 7939236-1 (Version None)
Quarter: 2011Q4

REPORT INFORMATION
  Report Type: 
  Country: None (occurrence: None)
  Receive Date: 20111124
  Receipt Date: 20111121
  Transmission Date: 20120403
  Serious: Yes (Disabling, Other)
  Sender: FDA-Public Use
  Company Number: CA-SANOFI-AVENTIS-2010SA074456

PATIENT
  Age: 60 Year
  Sex: Male
  Weight: 127 kg

DRUGS (6)
  1. LEUCOVORIN CALCIUM [Concomitant]
     Route: 042
     Dates: start: 20091015, end: 20091015
  2. OXAZEPAM [Concomitant]
     Indication: INSOMNIA
  3. FLUOROURACIL [Concomitant]
     Route: 042
     Dates: start: 20091015, end: 20091015
  4. ELOXATIN [Suspect]
     Route: 042
     Dates: start: 20091015, end: 20091015
  5. DIAMICRON [Concomitant]
  6. METFORMIN [Concomitant]

REACTIONS (9)
  - HYPOAESTHESIA [None]
  - FEELING COLD [None]
  - NEUROPATHY PERIPHERAL [None]
  - CONSTIPATION [None]
  - HEPATIC NEOPLASM MALIGNANT RESECTABLE [None]
  - PARAESTHESIA [None]
  - DYSPNOEA [None]
  - GAIT DISTURBANCE [None]
  - DYSGRAPHIA [None]
